FAERS Safety Report 17103831 (Version 1)
Quarter: 2019Q4

REPORT INFORMATION
  Report Type: Spontaneous
  Country: FR (occurrence: FR)
  Receive Date: 20191203
  Receipt Date: 20191203
  Transmission Date: 20200122
  Serious: Yes (Hospitalization, Other)
  Sender: FDA-Public Use
  Company Number: FR-ROCHE-2488708

PATIENT
  Sex: Male

DRUGS (3)
  1. LEVOTHYROXINE. [Concomitant]
     Active Substance: LEVOTHYROXINE
     Indication: HYPOTHYROIDISM
     Route: 048
     Dates: start: 20130410, end: 20180118
  2. NUTROPIN [Suspect]
     Active Substance: SOMATROPIN
     Indication: PRADER-WILLI SYNDROME
     Route: 058
     Dates: start: 20131016
  3. EUTHYROX [Concomitant]
     Active Substance: LEVOTHYROXINE SODIUM
     Indication: HYPOTHYROIDISM
     Route: 048
     Dates: start: 20180119

REACTIONS (11)
  - Snoring [Recovered/Resolved]
  - Intentional product use issue [Unknown]
  - Conjunctivitis [Recovered/Resolved]
  - Headache [Recovered/Resolved]
  - Hypercholesterolaemia [Recovered/Resolved]
  - Dyspnoea [Recovered/Resolved]
  - Off label use [Unknown]
  - Bronchitis [Recovered/Resolved]
  - Obesity [Not Recovered/Not Resolved]
  - Tonsillar hypertrophy [Recovered/Resolved]
  - Pruritus [Recovered/Resolved]

NARRATIVE: CASE EVENT DATE: 201401
